FAERS Safety Report 5743537-5 (Version None)
Quarter: 2008Q2

REPORT INFORMATION
  Report Type: 
  Country: None (occurrence: None)
  Receive Date: 20080519
  Receipt Date: 20080519
  Transmission Date: 20081010
  Serious: Yes (Other)
  Sender: FDA-Public Use
  Company Number: None

PATIENT
  Age: 31 Year
  Sex: Female
  Weight: 63.5036 kg

DRUGS (4)
  1. ETODOLAC [Suspect]
     Indication: ARTHRALGIA
     Dosage: 1 400MG PILL 2TIMES A DAY PO
     Route: 048
     Dates: start: 20071111, end: 20071118
  2. ETODOLAC [Suspect]
     Indication: MYALGIA
     Dosage: 1 400MG PILL 2TIMES A DAY PO
     Route: 048
     Dates: start: 20071111, end: 20071118
  3. ETODOLAC [Suspect]
     Indication: ARTHRALGIA
     Dosage: 1 400MG PILL 2TIMES A DAY PO
     Route: 048
     Dates: start: 20080502, end: 20080516
  4. ETODOLAC [Suspect]
     Indication: MYALGIA
     Dosage: 1 400MG PILL 2TIMES A DAY PO
     Route: 048
     Dates: start: 20080502, end: 20080516

REACTIONS (5)
  - ASTHENIA [None]
  - DIZZINESS [None]
  - EYE SWELLING [None]
  - FATIGUE [None]
  - URTICARIA [None]
